FAERS Safety Report 9790574 (Version 1)
Quarter: 2013Q4

REPORT INFORMATION
  Report Type: Spontaneous
  Country: US (occurrence: US)
  Receive Date: 20131231
  Receipt Date: 20131231
  Transmission Date: 20140711
  Serious: Yes (Other)
  Sender: FDA-Public Use
  Company Number: US-MYLANLABS-2013S1028931

PATIENT
  Age: 31 Year
  Sex: Female

DRUGS (1)
  1. EPIPEN 2-PAK [Suspect]
     Indication: ANAPHYLACTIC REACTION
     Route: 030
     Dates: start: 201306

REACTIONS (1)
  - Device failure [Recovered/Resolved]
